FAERS Safety Report 7465625-8 (Version None)
Quarter: 2011Q2

REPORT INFORMATION
  Report Type: 
  Country: None (occurrence: None)
  Receive Date: 20110509
  Receipt Date: 20110429
  Transmission Date: 20111010
  Serious: Yes (Hospitalization, Other)
  Sender: FDA-Public Use
  Company Number: EE-ASTRAZENECA-2011SE25927

PATIENT
  Age: 52 Year
  Sex: Male

DRUGS (5)
  1. CLOPIDOGREL [Interacting]
     Route: 048
  2. RAMIPRIL [Interacting]
     Route: 048
  3. OMEPRAZOLE [Interacting]
     Route: 048
  4. SIMVASTATIN [Interacting]
     Route: 048
  5. METOPROLOL SUCCINATE [Suspect]
     Route: 048

REACTIONS (3)
  - CONSTIPATION [None]
  - ILEUS [None]
  - DRUG INTERACTION [None]
